FAERS Safety Report 8943437 (Version 1)
Quarter: 2012Q4

REPORT INFORMATION
  Report Type: 
  Country: US (occurrence: US)
  Receive Date: 20121204
  Receipt Date: 20121204
  Transmission Date: 20130627
  Serious: No
  Sender: FDA-Public Use
  Company Number: US-PFIZER INC-2012279187

PATIENT
  Sex: Female

DRUGS (2)
  1. ACCUPRIL [Suspect]
     Indication: BLOOD PRESSURE
     Dosage: 5 mg, UNK
  2. ACCURETIC [Suspect]
     Dosage: 20-12.5, UNK

REACTIONS (3)
  - Blood sodium decreased [Unknown]
  - Drug level increased [Unknown]
  - Drug ineffective [Unknown]
